FAERS Safety Report 4473501-8 (Version None)
Quarter: 2004Q3

REPORT INFORMATION
  Report Type: 
  Country: None (occurrence: None)
  Receive Date: 20040921
  Receipt Date: 20040715
  Transmission Date: 20050211
  Serious: Yes (Other)
  Sender: FDA-Public Use
  Company Number: 2004048134

PATIENT
  Age: 61 Year
  Sex: Male

DRUGS (1)
  1. DILANTIN [Suspect]
     Indication: ILL-DEFINED DISORDER

REACTIONS (1)
  - ANTICONVULSANT TOXICITY [None]
